FAERS Safety Report 7039664-5 (Version None)
Quarter: 2010Q4

REPORT INFORMATION
  Report Type: 
  Country: None (occurrence: None)
  Receive Date: 20101012
  Receipt Date: 20101004
  Transmission Date: 20110411
  Serious: Yes (Hospitalization)
  Sender: FDA-Public Use
  Company Number: B0677479A

PATIENT
  Sex: Male

DRUGS (2)
  1. LAMICTAL [Suspect]
     Indication: EPILEPSY
     Route: 048
     Dates: start: 20100908, end: 20100928
  2. URBANYL [Suspect]
     Indication: EPILEPSY
     Dosage: 5MG THREE TIMES PER DAY
     Route: 048
     Dates: start: 20100908

REACTIONS (10)
  - COUGH [None]
  - ENANTHEMA [None]
  - EOSINOPHILIA [None]
  - ERYTHEMA [None]
  - LYMPHADENOPATHY [None]
  - LYMPHOPENIA [None]
  - PRURITUS [None]
  - PYREXIA [None]
  - RASH [None]
  - RHINITIS [None]
